FAERS Safety Report 7721241-1 (Version None)
Quarter: 2011Q3

REPORT INFORMATION
  Report Type: 
  Country: None (occurrence: None)
  Receive Date: 20110831
  Receipt Date: 20110107
  Transmission Date: 20111222
  Serious: No
  Sender: FDA-Public Use
  Company Number: US-BAYER-2011-003103

PATIENT
  Age: 35 Year
  Sex: Female

DRUGS (1)
  1. MIRENA [Suspect]
     Indication: CONTRACEPTION
     Dosage: UNK
     Dates: start: 20101230, end: 20101230

REACTIONS (2)
  - CERVIX HAEMORRHAGE UTERINE [None]
  - INTRA-UTERINE CONTRACEPTIVE DEVICE REMOVAL [None]
